FAERS Safety Report 10593745 (Version 1)
Quarter: 2014Q4

REPORT INFORMATION
  Report Type: Other
  Country: JP (occurrence: JP)
  Receive Date: 20141119
  Receipt Date: 20141119
  Transmission Date: 20150529
  Serious: Yes (Other)
  Sender: FDA-Public Use
  Company Number: JP-ENDO PHARMACEUTICALS INC-RHEU20140058

PATIENT
  Age: 56 Year
  Sex: Male

DRUGS (2)
  1. CYCLOSPORINE. [Concomitant]
     Active Substance: CYCLOSPORINE
     Indication: PSORIATIC ARTHROPATHY
     Dosage: UNKNOWN
     Route: 048
  2. RHEUMATREX [Suspect]
     Active Substance: METHOTREXATE SODIUM
     Indication: PSORIATIC ARTHROPATHY
     Route: 065

REACTIONS (3)
  - Blindness unilateral [Recovered/Resolved]
  - Uveitis [Recovered/Resolved]
  - Keratitis [None]
